FAERS Safety Report 9410987 (Version 1)
Quarter: 2013Q3

REPORT INFORMATION
  Report Type: Spontaneous
  Country: US (occurrence: US)
  Receive Date: 20130719
  Receipt Date: 20130719
  Transmission Date: 20140515
  Serious: No
  Sender: FDA-Public Use
  Company Number: US-TEVA-420207USA

PATIENT
  Age: 23 Year
  Sex: Female
  Weight: 67.65 kg

DRUGS (2)
  1. PLAN B ONE-STEP [Suspect]
     Indication: POST COITAL CONTRACEPTION
     Dosage: 1.5 MILLIGRAM DAILY;
     Route: 048
     Dates: start: 20130714, end: 20130714
  2. DORYX [Concomitant]
     Indication: ACNE

REACTIONS (5)
  - Dyspareunia [Not Recovered/Not Resolved]
  - Dysuria [Recovered/Resolved]
  - Abdominal distension [Not Recovered/Not Resolved]
  - Nausea [Not Recovered/Not Resolved]
  - Breast tenderness [Not Recovered/Not Resolved]
